FAERS Safety Report 9699942 (Version 1)
Quarter: 2013Q4

REPORT INFORMATION
  Report Type: Spontaneous
  Country: CN (occurrence: CN)
  Receive Date: 20131121
  Receipt Date: 20131121
  Transmission Date: 20140711
  Serious: Yes (Hospitalization, Other)
  Sender: FDA-Public Use
  Company Number: CN-ROCHE-1306507

PATIENT
  Age: 42 Year
  Sex: Female

DRUGS (4)
  1. MYCOPHENOLATE MOFETIL [Suspect]
     Indication: SYSTEMIC LUPUS ERYTHEMATOSUS
     Dosage: FOR 3 MONTHS
     Route: 065
  2. MYCOPHENOLATE MOFETIL [Suspect]
     Dosage: DOSE TAPERED
     Route: 065
  3. METHYLPREDNISOLONE [Suspect]
     Indication: SYSTEMIC LUPUS ERYTHEMATOSUS
     Route: 065
  4. METHYLPREDNISOLONE [Suspect]
     Dosage: DOSE TAPERED
     Route: 065

REACTIONS (6)
  - Herpes simplex encephalitis [Recovering/Resolving]
  - Meningitis bacterial [Recovering/Resolving]
  - Necrotising retinitis [Recovering/Resolving]
  - Retinitis [Recovering/Resolving]
  - Herpes zoster [Unknown]
  - Cytomegalovirus test positive [Unknown]
